FAERS Safety Report 8513929-X (Version None)
Quarter: 2012Q3

REPORT INFORMATION
  Report Type: 
  Country: None (occurrence: None)
  Receive Date: 20120705
  Receipt Date: 20120622
  Transmission Date: 20120928
  Serious: Yes (Hospitalization)
  Sender: FDA-Public Use
  Company Number: 2012SP031889

PATIENT
  Age: 52 Year
  Sex: Female

DRUGS (8)
  1. TRANXENE [Concomitant]
  2. ZOFRAN [Concomitant]
  3. RIBAVIRIN [Suspect]
     Indication: HEPATITIS C
  4. SYNTHROID [Concomitant]
  5. EFFEXOR [Concomitant]
  6. LISINOPRIL [Concomitant]
  7. PAXIL CR [Concomitant]
  8. PEG-INTRON [Suspect]
     Indication: HEPATITIS C
     Dosage: 120 MCG; QW
     Dates: start: 20120501

REACTIONS (5)
  - DYSPNOEA [None]
  - FALL [None]
  - DEVICE MALFUNCTION [None]
  - ASTHENIA [None]
  - BLOOD PRESSURE DECREASED [None]
